FAERS Safety Report 19998694 (Version 1)
Quarter: 2021Q4

REPORT INFORMATION
  Report Type: Spontaneous
  Country: FR (occurrence: FR)
  Receive Date: 20211027
  Receipt Date: 20211027
  Transmission Date: 20220303
  Serious: Yes (Congenital Anomaly, Other)
  Sender: FDA-Public Use
  Company Number: FR-ABBVIE-21K-056-4129766-00

PATIENT
  Sex: Female
  Weight: 2.97 kg

DRUGS (1)
  1. VALPROATE SODIUM [Suspect]
     Active Substance: VALPROATE SODIUM
     Indication: Epilepsy
     Route: 064
     Dates: start: 20070623, end: 20080314

REACTIONS (19)
  - Joint hyperextension [Unknown]
  - Joint laxity [Unknown]
  - Joint instability [Unknown]
  - Skin swelling [Unknown]
  - Eczema [Unknown]
  - Brachydactyly [Not Recovered/Not Resolved]
  - Congenital foot malformation [Unknown]
  - Limb asymmetry [Unknown]
  - Deafness unilateral [Unknown]
  - Vasodilatation [Unknown]
  - Pain [Unknown]
  - Paraesthesia [Unknown]
  - Tympanic membrane perforation [Unknown]
  - Tympanosclerosis [Unknown]
  - Congenital skin dimples [Unknown]
  - Foetal exposure during pregnancy [Unknown]
  - Polydactyly [Unknown]
  - Polydactyly [Unknown]
  - Talipes [Not Recovered/Not Resolved]

NARRATIVE: CASE EVENT DATE: 20110401
